FAERS Safety Report 5100785-5 (Version None)
Quarter: 2006Q3

REPORT INFORMATION
  Report Type: 
  Country: None (occurrence: None)
  Receive Date: 20060906
  Receipt Date: 20060824
  Transmission Date: 20061208
  Serious: Yes (Other)
  Sender: FDA-Public Use
  Company Number: CN-2006-024615

PATIENT
  Age: 40 Year
  Sex: Female
  Weight: 67 kg

DRUGS (1)
  1. ULTRAVIST 300 [Suspect]
     Indication: COMPUTERISED TOMOGRAM
     Dosage: 100 ML,  1 DOSE, INTRAVENOUS
     Route: 042
     Dates: start: 20060821, end: 20060821

REACTIONS (3)
  - FACE OEDEMA [None]
  - HAEMATURIA [None]
  - URTICARIA [None]
